FAERS Safety Report 25798148 (Version 2)
Quarter: 2025Q4

REPORT INFORMATION
  Report Type: Spontaneous
  Country: CA (occurrence: CA)
  Receive Date: 20250912
  Receipt Date: 20251103
  Transmission Date: 20260117
  Serious: Yes (Other)
  Sender: PFIZER
  Company Number: CA-PFIZER INC-202500178847

PATIENT
  Age: 29 Year
  Sex: Female
  Weight: 55 kg

DRUGS (3)
  1. IXIFI [Suspect]
     Active Substance: INFLIXIMAB-QBTX
     Indication: Crohn^s disease
     Dosage: 10 MG/KG, EVERY 8 WEEK
     Route: 042
     Dates: start: 20250710
  2. IXIFI [Suspect]
     Active Substance: INFLIXIMAB-QBTX
     Dosage: 550 MG AFTER 9 WEEKS (10 MG/KG, EVERY 8 WEEK)
     Route: 042
     Dates: start: 20250909
  3. IRON [Concomitant]
     Active Substance: IRON
     Dosage: 1 DF,UNKNOWN DOSAGE INFO

REACTIONS (4)
  - Fistula [Unknown]
  - Nasal congestion [Unknown]
  - Rhinorrhoea [Unknown]
  - Cough [Unknown]

NARRATIVE: CASE EVENT DATE: 20250101
